FAERS Safety Report 8943275 (Version 2)
Quarter: 2012Q4

REPORT INFORMATION
  Report Type: 
  Country: CO (occurrence: CO)
  Receive Date: 20121204
  Receipt Date: 20121213
  Transmission Date: 20130627
  Serious: Yes (Hospitalization, Other)
  Sender: FDA-Public Use
  Company Number: CO-009507513-1211COL012836

PATIENT
  Age: 48 Year
  Sex: Female

DRUGS (3)
  1. PEG-INTRON [Suspect]
     Dosage: 100 Microgram, qw
     Dates: start: 20120928, end: 20121129
  2. RIBAVIRIN [Suspect]
     Dosage: 1000 mg, qd
     Dates: start: 20120928
  3. VICTRELIS [Suspect]
     Dosage: 2400 mg, qd
     Dates: start: 20121026

REACTIONS (5)
  - Hepatic failure [Unknown]
  - Large intestine perforation [Unknown]
  - Peritonitis [Unknown]
  - Abdominal pain [Unknown]
  - Pyrexia [Unknown]
